FAERS Safety Report 5648543-7 (Version None)
Quarter: 2008Q1

REPORT INFORMATION
  Report Type: 
  Country: None (occurrence: None)
  Receive Date: 20080303
  Receipt Date: 20080303
  Transmission Date: 20080703
  Serious: No
  Sender: FDA-Public Use
  Company Number: None

PATIENT
  Sex: Female
  Weight: 50.7 kg

DRUGS (4)
  1. FLUOROURACIL [Suspect]
     Dosage: 11175 MG
     Dates: end: 20080220
  2. BEVACIZUMAB (RHUMAB VEGF) [Suspect]
     Dosage: 840 MG
     Dates: end: 20080220
  3. LEUCOVORIN CALCIUM [Suspect]
     Dosage: 1980 MG
     Dates: end: 20080220
  4. ELOXATIN [Suspect]
     Dosage: 300 MG
     Dates: end: 20080220

REACTIONS (5)
  - ABDOMINAL PAIN [None]
  - ANOREXIA [None]
  - BACTERIA URINE IDENTIFIED [None]
  - FATIGUE [None]
  - WHITE BLOOD CELLS URINE POSITIVE [None]
